FAERS Safety Report 10275124 (Version 2)
Quarter: 2015Q2

REPORT INFORMATION
  Report Type: Spontaneous
  Country: RU (occurrence: RU)
  Receive Date: 20140703
  Receipt Date: 20150626
  Transmission Date: 20150821
  Serious: Yes (Other)
  Sender: FDA-Public Use
  Company Number: RU-UCBSA-2014003516

PATIENT
  Age: 14 Year
  Sex: Female

DRUGS (4)
  1. VIMPAT [Suspect]
     Active Substance: LACOSAMIDE
     Dosage: 100 MG, ONCE DAILY (QD)
     Route: 048
     Dates: start: 201307, end: 201310
  2. VIMPAT [Suspect]
     Active Substance: LACOSAMIDE
     Indication: EPILEPSY
     Dosage: 25 MG, ONCE DAILY (QD)
     Route: 048
     Dates: start: 201307, end: 201307
  3. SUXILEP [Suspect]
     Active Substance: ETHOSUXIMIDE
     Indication: EPILEPSY
     Dosage: UNK
  4. CONVULEX [Concomitant]
     Indication: EPILEPSY
     Dosage: UNK

REACTIONS (2)
  - Seizure [Recovered/Resolved]
  - Diarrhoea [Recovered/Resolved]

NARRATIVE: CASE EVENT DATE: 201307
